FAERS Safety Report 17606817 (Version 1)
Quarter: 2020Q1

REPORT INFORMATION
  Report Type: Spontaneous
  Country: ZA (occurrence: ZA)
  Receive Date: 20200331
  Receipt Date: 20200331
  Transmission Date: 20200409
  Serious: Yes (Death)
  Sender: FDA-Public Use
  Company Number: ZA-ASTRAZENECA-2020SE43652

PATIENT

DRUGS (3)
  1. ZUVAMOR [Suspect]
     Active Substance: ROSUVASTATIN
     Route: 048
  2. STILPANE [Concomitant]
  3. MYLAN OXYBUTYNIN CHL [Concomitant]

REACTIONS (1)
  - Death [Fatal]
